FAERS Safety Report 19322017 (Version 1)
Quarter: 2021Q2

REPORT INFORMATION
  Report Type: Spontaneous
  Country: GB (occurrence: GB)
  Receive Date: 20210528
  Receipt Date: 20210528
  Transmission Date: 20210717
  Serious: Yes (Other)
  Sender: FDA-Public Use
  Company Number: GB-NOVOPROD-815023

PATIENT
  Sex: Male

DRUGS (1)
  1. NORDITROPIN [Suspect]
     Active Substance: SOMATROPIN
     Indication: NEUROENDOCRINE TUMOUR
     Dosage: 0.3 MG, QD(AS DIRECTED)
     Route: 065

REACTIONS (1)
  - Hospice care [Unknown]
